FAERS Safety Report 25312382 (Version 2)
Quarter: 2025Q2

REPORT INFORMATION
  Report Type: Report from Study
  Country: US (occurrence: US)
  Receive Date: 20250514
  Receipt Date: 20250522
  Transmission Date: 20250716
  Serious: Yes (Other)
  Sender: PFIZER
  Company Number: US-PFIZER INC-202500089295

PATIENT
  Age: 85 Year
  Sex: Female

DRUGS (13)
  1. IBRANCE [Suspect]
     Active Substance: PALBOCICLIB
     Indication: Breast cancer female
     Route: 048
  2. IBRANCE [Suspect]
     Active Substance: PALBOCICLIB
     Route: 048
     Dates: start: 202504
  3. ASPIRIN [Concomitant]
     Active Substance: ASPIRIN
  4. HYDROCHLOROTHIAZIDE [Concomitant]
     Active Substance: HYDROCHLOROTHIAZIDE
  5. LOSARTAN POTASSIUM [Concomitant]
     Active Substance: LOSARTAN POTASSIUM
  6. VITAMINS [Concomitant]
     Active Substance: VITAMINS
     Dosage: UNK, DAILY
  7. MAGNESIUM [Concomitant]
     Active Substance: MAGNESIUM
  8. VITAMIN D3 [Concomitant]
     Active Substance: CHOLECALCIFEROL
  9. TYLENOL [Concomitant]
     Active Substance: ACETAMINOPHEN
  10. TUMS [Concomitant]
     Active Substance: CALCIUM CARBONATE
  11. FASLODEX [Concomitant]
     Active Substance: FULVESTRANT
  12. XGEVA [Concomitant]
     Active Substance: DENOSUMAB
  13. SIMVASTATIN [Concomitant]
     Active Substance: SIMVASTATIN

REACTIONS (2)
  - Red blood cell count decreased [Unknown]
  - White blood cell count decreased [Unknown]

NARRATIVE: CASE EVENT DATE: 20250415
